FAERS Safety Report 6721084-1 (Version None)
Quarter: 2010Q2

REPORT INFORMATION
  Report Type: 
  Country: None (occurrence: None)
  Receive Date: 20100510
  Receipt Date: 20100426
  Transmission Date: 20101027
  Serious: Yes (Other)
  Sender: FDA-Public Use
  Company Number: BR-1181607

PATIENT
  Age: 63 Year
  Sex: Female

DRUGS (8)
  1. BETOPTIC S [Suspect]
     Indication: GLAUCOMA
     Dosage: 1 GTT QD OS OPHTHALMIC
     Route: 047
  2. BETOPTIC [Suspect]
     Indication: GLAUCOMA
     Route: 047
  3. PURAN T4 (LEVOTHYROXINE SODIUM) [Concomitant]
  4. CRESTOR [Concomitant]
  5. ALENDRONATO (ALENDRONATE SODIUM) [Concomitant]
  6. OSSOTRAT-D (LEKOVIT CA) [Concomitant]
  7. ARTROLIVE [Concomitant]
  8. BISPHOPHONATES (BISPHOSPHONATES) [Concomitant]

REACTIONS (1)
  - TACHYCARDIA [None]
